FAERS Safety Report 7631565-4 (Version None)
Quarter: 2011Q3

REPORT INFORMATION
  Report Type: 
  Country: None (occurrence: None)
  Receive Date: 20110725
  Receipt Date: 20110720
  Transmission Date: 20111222
  Serious: Yes (Death)
  Sender: FDA-Public Use
  Company Number: US-ASTELLAS-2011US004115

PATIENT

DRUGS (3)
  1. ERLOTINIB HYDROCHLORIDE [Suspect]
     Dosage: 50 MG, UID/QD
     Route: 048
  2. ERLOTINIB HYDROCHLORIDE [Suspect]
     Indication: HEAD AND NECK CANCER
     Dosage: 100 MG, UID/QD
     Route: 048
  3. DOCETAXEL [Suspect]
     Indication: HEAD AND NECK CANCER
     Dosage: 35 MG/M2, WEEKLY X3 EVERY 4 WEEKS
     Route: 042

REACTIONS (2)
  - INFECTION [None]
  - NEUTROPENIA [None]
